FAERS Safety Report 5031063-0 (Version None)
Quarter: 2006Q2

REPORT INFORMATION
  Report Type: 
  Country: None (occurrence: None)
  Receive Date: 20060504
  Receipt Date: 20060127
  Transmission Date: 20061013
  Serious: No
  Sender: FDA-Public Use
  Company Number: 200610559BWH

PATIENT
  Age: 48 Year
  Sex: Male

DRUGS (4)
  1. LEVITRA [Suspect]
     Dosage: 10 MG, TOTAL DAILY, ORAL
     Route: 048
     Dates: start: 20050101
  2. HIGH BLOOD PRESSURE PILLS [Concomitant]
  3. DIABETES PILLS [Concomitant]
  4. GOUT PILLS [Concomitant]

REACTIONS (1)
  - HEART RATE INCREASED [None]
